FAERS Safety Report 19822903 (Version 1)
Quarter: 2021Q3

REPORT INFORMATION
  Report Type: Spontaneous
  Country: US (occurrence: US)
  Receive Date: 20210913
  Receipt Date: 20210913
  Transmission Date: 20211014
  Serious: No
  Sender: FDA-Public Use
  Company Number: US-GLENMARK PHARMACEUTICALS-2021GMK054385

PATIENT

DRUGS (2)
  1. FULVESTRANT INJECTION, 250 MG/5 ML (50 MG/ML) [Suspect]
     Active Substance: FULVESTRANT
     Indication: BREAST CANCER
     Dosage: UNK (EVERY 28 DAYS)
     Route: 030
     Dates: start: 202012, end: 20210527
  2. VERZENIO [Concomitant]
     Active Substance: ABEMACICLIB
     Indication: BREAST CANCER
     Dosage: UNK
     Route: 065

REACTIONS (7)
  - Burning sensation [Not Recovered/Not Resolved]
  - Inappropriate schedule of product administration [Unknown]
  - Injection site pain [Not Recovered/Not Resolved]
  - Injection site irritation [Not Recovered/Not Resolved]
  - Myalgia [Not Recovered/Not Resolved]
  - Headache [Unknown]
  - Paraesthesia [Not Recovered/Not Resolved]

NARRATIVE: CASE EVENT DATE: 202012
